FAERS Safety Report 25032503 (Version 1)
Quarter: 2025Q1

REPORT INFORMATION
  Report Type: Spontaneous
  Country: SG (occurrence: SG)
  Receive Date: 20250303
  Receipt Date: 20250303
  Transmission Date: 20250408
  Serious: Yes (Death, Other)
  Sender: GLAXOSMITHKLINE
  Company Number: SG-GSK-SG2025APC025194

PATIENT

DRUGS (2)
  1. ZEJULA [Suspect]
     Active Substance: NIRAPARIB
     Indication: Product used for unknown indication
     Dates: start: 20210101, end: 20220130
  2. ZEJULA [Suspect]
     Active Substance: NIRAPARIB

REACTIONS (7)
  - Death [Fatal]
  - Fatigue [Unknown]
  - Insomnia [Unknown]
  - Leukopenia [Unknown]
  - Neutropenia [Unknown]
  - Malignant biliary obstruction [Unknown]
  - Ascites [Unknown]

NARRATIVE: CASE EVENT DATE: 20240401
